FAERS Safety Report 10903693 (Version 1)
Quarter: 2015Q1

REPORT INFORMATION
  Report Type: Spontaneous
  Country: US (occurrence: None)
  Receive Date: 20150304
  Receipt Date: 20150304
  Transmission Date: 20150721
  Serious: Yes (Death)
  Sender: FDA-Public Use
  Company Number: None

PATIENT
  Age: 86 Year
  Sex: Male
  Weight: 81.19 kg

DRUGS (10)
  1. AMLODIPINE [Concomitant]
     Active Substance: AMLODIPINE BESYLATE
  2. VIAGRA [Concomitant]
     Active Substance: SILDENAFIL CITRATE
  3. BUMETANIDE 1 MG [Suspect]
     Active Substance: BUMETANIDE
     Indication: OEDEMA
     Dosage: 1 TABLET QD ORAL
     Route: 048
     Dates: start: 20140901, end: 20140907
  4. ALLOPURINOL. [Concomitant]
     Active Substance: ALLOPURINOL
  5. ACCUPRIL [Concomitant]
     Active Substance: QUINAPRIL HYDROCHLORIDE
  6. ASPIRIN. [Concomitant]
     Active Substance: ASPIRIN
  7. LYRICA [Concomitant]
     Active Substance: PREGABALIN
  8. ZOCOR [Concomitant]
     Active Substance: SIMVASTATIN
  9. CARVEDILOL. [Concomitant]
     Active Substance: CARVEDILOL
  10. OMEPRAZOLE. [Concomitant]
     Active Substance: OMEPRAZOLE

REACTIONS (13)
  - Stevens-Johnson syndrome [None]
  - Eye discharge [None]
  - Rash generalised [None]
  - Documented hypersensitivity to administered product [None]
  - Eye pain [None]
  - Laboratory test interference [None]
  - Eye irritation [None]
  - Pyrexia [None]
  - Stress [None]
  - Ocular hyperaemia [None]
  - Cardiac arrest [None]
  - Acidosis [None]
  - Purulence [None]

NARRATIVE: CASE EVENT DATE: 20140903
